FAERS Safety Report 22184130 (Version 1)
Quarter: 2023Q2

REPORT INFORMATION
  Report Type: Report from Study
  Country: US (occurrence: US)
  Receive Date: 20230407
  Receipt Date: 20230407
  Transmission Date: 20230721
  Serious: Yes (Death, Other)
  Sender: FDA-Public Use
  Company Number: US-ACADIA PHARMACEUTICALS INC.-ACA-2023-PIM-001039

PATIENT
  Sex: Male

DRUGS (15)
  1. NUPLAZID [Suspect]
     Active Substance: PIMAVANSERIN TARTRATE
     Indication: Parkinson^s disease
     Dosage: 34 MILLIGRAM, QD
     Route: 048
     Dates: start: 20220929, end: 20230312
  2. AMIODARONE [Concomitant]
     Active Substance: AMIODARONE
  3. AMLODIPINE [Concomitant]
     Active Substance: AMLODIPINE BESYLATE
  4. ASPIRIN [Concomitant]
     Active Substance: ASPIRIN
  5. LEVOTHYROXINE [Concomitant]
     Active Substance: LEVOTHYROXINE
  6. METOPROLOL [Concomitant]
     Active Substance: METOPROLOL
  7. PLAVISIN [Concomitant]
  8. PRAMIPEXOLE [Concomitant]
     Active Substance: PRAMIPEXOLE
  9. PRAVASTATIN [Concomitant]
     Active Substance: PRAVASTATIN
  10. RISPERDAL [Concomitant]
     Active Substance: RISPERIDONE
  11. SINGULAIR [Concomitant]
     Active Substance: MONTELUKAST SODIUM
  12. SPIRIVA [Concomitant]
     Active Substance: TIOTROPIUM BROMIDE MONOHYDRATE
  13. CARBIDOPA LEVODOPA [Concomitant]
     Active Substance: CARBIDOPA\LEVODOPA
  14. NOURIANZ [Concomitant]
     Active Substance: ISTRADEFYLLINE
  15. RYTARY [Concomitant]
     Active Substance: CARBIDOPA\LEVODOPA

REACTIONS (2)
  - Dementia [Recovered/Resolved]
  - Parkinson^s disease [Recovered/Resolved]
